FAERS Safety Report 8775317 (Version 1)
Quarter: 2012Q4

REPORT INFORMATION
  Report Type: 
  Country: IT (occurrence: IT)
  Receive Date: 20120909
  Receipt Date: 20120909
  Transmission Date: 20130627
  Serious: Yes (Other)
  Sender: FDA-Public Use
  Company Number: IT-009507513-1209ITA001200

PATIENT

DRUGS (2)
  1. PEGINTRON [Suspect]
     Indication: HEPATITIS C
     Dosage: 1.5 Microgram, qw
  2. REBETOL [Suspect]
     Indication: HEPATITIS C
     Dosage: 800-1400 mg, qd

REACTIONS (1)
  - Thrombocytopenia [Unknown]
